FAERS Safety Report 11853772 (Version 1)
Quarter: 2015Q4

REPORT INFORMATION
  Report Type: Spontaneous
  Country: US (occurrence: US)
  Receive Date: 20151219
  Receipt Date: 20151219
  Transmission Date: 20160305
  Serious: Yes (Hospitalization)
  Sender: FDA-Public Use
  Company Number: US-009507513-1512USA008994

PATIENT
  Sex: Female

DRUGS (2)
  1. DULERA [Suspect]
     Active Substance: FORMOTEROL FUMARATE DIHYDRATE\MOMETASONE FUROATE
     Dosage: 2 INHALATIONS A DAY (ONCE IN THE MORNING, ONCE AT NIGHT)
     Route: 055
  2. DULERA [Suspect]
     Active Substance: FORMOTEROL FUMARATE DIHYDRATE\MOMETASONE FUROATE
     Dosage: 4 INHALATIONS A DAY (TWICE IN THE MORNING, TWICE AT NIGHT)
     Route: 055

REACTIONS (4)
  - Adverse event [Unknown]
  - Dyspnoea [Unknown]
  - Wheezing [Unknown]
  - Drug dose omission [Unknown]
